FAERS Safety Report 12647889 (Version 1)
Quarter: 2016Q3

REPORT INFORMATION
  Report Type: Spontaneous
  Country: FR (occurrence: FR)
  Receive Date: 20160812
  Receipt Date: 20160812
  Transmission Date: 20161109
  Serious: Yes (Hospitalization, Other)
  Sender: FDA-Public Use
  Company Number: FR-PFIZER INC-2016379270

PATIENT
  Age: 64 Year
  Sex: Female

DRUGS (6)
  1. CARBOPLATINE HOSPIRA [Suspect]
     Active Substance: CARBOPLATIN
     Indication: OVARIAN CANCER
     Dosage: UNK, WEEKLY
     Route: 041
     Dates: start: 20160429, end: 20160722
  2. POLARAMINE [Concomitant]
     Active Substance: DEXCHLORPHENIRAMINE MALEATE
     Indication: PREMEDICATION
     Dosage: UNK
  3. ZOPHREN /00955301/ [Concomitant]
     Active Substance: ONDANSETRON
     Indication: PREMEDICATION
     Dosage: UNK
     Dates: start: 20160722
  4. PACLITAXEL HOSPIRA [Concomitant]
     Active Substance: PACLITAXEL
     Indication: OVARIAN CANCER
     Dosage: UNK UNK, WEEKLY
     Route: 041
     Dates: start: 20160429, end: 20160722
  5. AZANTAC [Concomitant]
     Active Substance: RANITIDINE HYDROCHLORIDE
     Indication: PREMEDICATION
     Dosage: UNK
     Dates: start: 20160722
  6. DEXAMETHASONE. [Concomitant]
     Active Substance: DEXAMETHASONE
     Indication: PREMEDICATION
     Dosage: UNK
     Dates: start: 20160722

REACTIONS (6)
  - Feeling hot [Unknown]
  - Malaise [Recovered/Resolved]
  - Erythema [Recovered/Resolved]
  - Nausea [Recovered/Resolved]
  - Tachypnoea [Recovered/Resolved]
  - Plantar erythema [Unknown]

NARRATIVE: CASE EVENT DATE: 20160722
